FAERS Safety Report 6084940-6 (Version None)
Quarter: 2009Q1

REPORT INFORMATION
  Report Type: 
  Country: None (occurrence: None)
  Receive Date: 20090220
  Receipt Date: 20090213
  Transmission Date: 20090719
  Serious: No
  Sender: FDA-Public Use
  Company Number: US-JNJFOC-20090101758

PATIENT
  Sex: Female
  Weight: 70.31 kg

DRUGS (8)
  1. DURAGESIC-100 [Suspect]
     Route: 062
  2. DURAGESIC-100 [Suspect]
     Indication: PAIN
     Route: 062
  3. DURAGESIC-100 [Suspect]
     Indication: PANCREATITIS CHRONIC
     Route: 062
  4. WELLBUTRIN [Suspect]
     Route: 048
  5. WELLBUTRIN [Suspect]
     Indication: SMOKING CESSATION THERAPY
     Route: 048
  6. REGLAN [Concomitant]
     Indication: NAUSEA
     Dosage: AS NEEDED
     Route: 048
     Dates: start: 20070101
  7. CREON [Concomitant]
     Indication: DYSPEPSIA
     Dosage: WITH EACH MEAL
     Route: 048
     Dates: start: 20070101
  8. OXYCODONE [Concomitant]
     Indication: PAIN
     Route: 048
     Dates: start: 20080101

REACTIONS (4)
  - APPLICATION SITE RASH [None]
  - DRUG PRESCRIBING ERROR [None]
  - INAPPROPRIATE SCHEDULE OF DRUG ADMINISTRATION [None]
  - WRONG TECHNIQUE IN DRUG USAGE PROCESS [None]
